FAERS Safety Report 15547221 (Version 1)
Quarter: 2018Q4

REPORT INFORMATION
  Report Type: Spontaneous
  Country: CN (occurrence: CN)
  Receive Date: 20181024
  Receipt Date: 20181024
  Transmission Date: 20190205
  Serious: Yes (Hospitalization)
  Sender: FDA-Public Use
  Company Number: CN-ELI_LILLY_AND_COMPANY-CN201810009353

PATIENT
  Age: 47 Year
  Sex: Female
  Weight: 55 kg

DRUGS (4)
  1. GEMCITABINE HYDROCHLORIDE. [Suspect]
     Active Substance: GEMCITABINE HYDROCHLORIDE
     Indication: BREAST CANCER METASTATIC
     Dosage: 1200 MG, CYCLICAL ON DAYS 1, 8 AND 15, EVERY 28 DAYS
     Route: 065
     Dates: start: 20180915
  2. OXYCODONE AND ACETAMINOPHEN [Concomitant]
     Active Substance: ACETAMINOPHEN\OXYCODONE HYDROCHLORIDE
     Indication: INSOMNIA
     Dosage: UNK
     Dates: start: 20180910
  3. PACLITAXEL LIPOSOME [Suspect]
     Active Substance: PACLITAXEL
     Indication: BREAST CANCER METASTATIC
     Dosage: 120 MG, CYCLICAL ON DAYS 1, 8 AND 15, EVERY 28 DAYS
     Route: 065
     Dates: start: 20180915
  4. CLONAZEPAM. [Concomitant]
     Active Substance: CLONAZEPAM
     Indication: INSOMNIA
     Dosage: UNK
     Dates: start: 201801

REACTIONS (3)
  - Off label use [Unknown]
  - Pneumonia [Not Recovered/Not Resolved]
  - Hypokalaemia [Not Recovered/Not Resolved]
